FAERS Safety Report 8884921 (Version 9)
Quarter: 2013Q3

REPORT INFORMATION
  Report Type: Report from Study
  Country: PL (occurrence: PL)
  Receive Date: 20121105
  Receipt Date: 20130916
  Transmission Date: 20140515
  Serious: Yes (Hospitalization)
  Sender: FDA-Public Use
  Company Number: PL-BRISTOL-MYERS SQUIBB COMPANY-17097940

PATIENT
  Age: 17 Year
  Sex: Female

DRUGS (2)
  1. ARIPIPRAZOLE [Suspect]
     Indication: SCHIZOPHRENIA
     Dosage: 13FEB-20OCT12:15MG,20MG:21OCT-23OCT12,25MG:24OCT-29OCT12,30MG:30OCT-13JAN13
     Route: 048
     Dates: start: 20120213, end: 20130113
  2. VALPROIC ACID [Concomitant]
     Indication: SCHIZOPHRENIA
     Dosage: 20OCT:800MG,21OCT-24OCT12:1300MG,25OCT-28OCT12:1800MG,29OCT-OMG:1500MG23MY:500MG
     Route: 048
     Dates: start: 20111214

REACTIONS (1)
  - Schizophrenia [Recovered/Resolved]
